FAERS Safety Report 9912649 (Version 1)
Quarter: 2014Q1

REPORT INFORMATION
  Report Type: Spontaneous
  Country: NZ (occurrence: None)
  Receive Date: 20140212
  Receipt Date: 20140212
  Transmission Date: 20141002
  Serious: Yes (Hospitalization)
  Sender: FDA-Public Use
  Company Number: IPC201402-000076

PATIENT
  Age: 63 Year
  Sex: Female

DRUGS (8)
  1. ALLOPURINOL [Suspect]
     Indication: GOUT
  2. AMIODARONE(AMIODARONE)(AMIODARONE) [Concomitant]
  3. ASPIRIN(ASPIRIN)(ASPIRIN) [Concomitant]
  4. SPIRONOLACTONE(SPIRONOLACTONE)(SPIRONOLACTONE) [Concomitant]
  5. FUROSEMIDE(FUROSEMIDE)(FUROSEMIDE) [Concomitant]
  6. METOPROLOL(METOPROLOL)(METOPROLOL) [Concomitant]
  7. WARFARIN(WARFARIN)(WARFARIN) [Concomitant]
  8. POTASSIUM SUPPLEMENTS(POTASSIUM)(POTASSIUM) [Concomitant]

REACTIONS (12)
  - Drug reaction with eosinophilia and systemic symptoms [None]
  - Vasculitis cerebral [None]
  - Sinus bradycardia [None]
  - Thyroxine increased [None]
  - Troponin T increased [None]
  - Red blood cells urine [None]
  - Electrocardiogram T wave inversion [None]
  - Torsade de pointes [None]
  - Cardiac disorder [None]
  - Cerebral infarction [None]
  - Gliosis [None]
  - Cerebral ischaemia [None]
